FAERS Safety Report 11172532 (Version 1)
Quarter: 2015Q2

REPORT INFORMATION
  Report Type: Spontaneous
  Country: US (occurrence: US)
  Receive Date: 20150608
  Receipt Date: 20150608
  Transmission Date: 20150821
  Serious: No
  Sender: FDA-Public Use
  Company Number: US-AMGEN-USASP2015006059

PATIENT
  Age: 26 Year
  Sex: Male

DRUGS (3)
  1. EPOGEN [Suspect]
     Active Substance: ERYTHROPOIETIN
     Indication: NEPHROGENIC ANAEMIA
     Dosage: 11,000 UNITS 3 X QWEEK
     Route: 042
  2. VENOFER [Concomitant]
     Active Substance: IRON SUCROSE
     Dosage: 560 MG, QWK
     Route: 042
     Dates: start: 20140917, end: 20141118
  3. VENOFER [Concomitant]
     Active Substance: IRON SUCROSE
     Indication: IRON DEFICIENCY
     Dosage: 100 MG, 3 TIMES/WK
     Route: 042
     Dates: start: 20140212, end: 20140916

REACTIONS (3)
  - Drug specific antibody present [Unknown]
  - Haemoglobin abnormal [Unknown]
  - Therapeutic response decreased [Not Recovered/Not Resolved]

NARRATIVE: CASE EVENT DATE: 20150107
